FAERS Safety Report 22219890 (Version 1)
Quarter: 2023Q2

REPORT INFORMATION
  Report Type: Spontaneous
  Country: FR (occurrence: None)
  Receive Date: 20230417
  Receipt Date: 20230417
  Transmission Date: 20230722
  Serious: Yes (Other)
  Sender: FDA-Public Use
  Company Number: 2023A086551

PATIENT
  Sex: Female

DRUGS (3)
  1. IMFINZI [Suspect]
     Active Substance: DURVALUMAB
     Indication: Bile duct cancer
     Route: 042
  2. CYSPLATINE [Concomitant]
  3. GEMCITABINE [Concomitant]
     Active Substance: GEMCITABINE

REACTIONS (1)
  - Malignant neoplasm progression [Unknown]
